FAERS Safety Report 11804458 (Version 1)
Quarter: 2015Q4

REPORT INFORMATION
  Report Type: Spontaneous
  Country: CN (occurrence: CN)
  Receive Date: 20151204
  Receipt Date: 20151204
  Transmission Date: 20160305
  Serious: Yes (Hospitalization, Other)
  Sender: FDA-Public Use
  Company Number: CN-GILEAD-2015-0185616

PATIENT
  Age: 58 Year
  Sex: Female

DRUGS (1)
  1. ADEFOVIR DIPIVOXIL. [Suspect]
     Active Substance: ADEFOVIR DIPIVOXIL
     Indication: CHRONIC HEPATITIS B
     Dosage: UNK
     Route: 065
     Dates: start: 200704

REACTIONS (12)
  - Blood alkaline phosphatase increased [Unknown]
  - Hypophosphataemia [Recovering/Resolving]
  - Osteomalacia [Recovering/Resolving]
  - Blood 25-hydroxycholecalciferol decreased [Unknown]
  - Musculoskeletal chest pain [Unknown]
  - Blood phosphorus decreased [Unknown]
  - Compression fracture [Unknown]
  - Arthralgia [Unknown]
  - Swelling [Unknown]
  - Osteoporosis [Recovering/Resolving]
  - Pain [Unknown]
  - Pyrexia [Unknown]
